FAERS Safety Report 11910073 (Version 2)
Quarter: 2017Q4

REPORT INFORMATION
  Report Type: Spontaneous
  Country: US (occurrence: US)
  Receive Date: 20160112
  Receipt Date: 20171018
  Transmission Date: 20180320
  Serious: Yes (Other)
  Sender: FDA-Public Use
  Company Number: US-SUN PHARMACEUTICAL INDUSTRIES LTD-2015US-109457

PATIENT
  Sex: Female

DRUGS (3)
  1. LORAZAPAM [Concomitant]
     Active Substance: LORAZEPAM
     Indication: CATATONIA
     Dosage: 12 MG, DAILY
     Route: 065
  2. OLANZAPINE. [Suspect]
     Active Substance: OLANZAPINE
     Dosage: 15 MG, DAILY
     Route: 065
  3. OLANZAPINE. [Suspect]
     Active Substance: OLANZAPINE
     Indication: CATATONIA
     Dosage: UNK
     Route: 065

REACTIONS (1)
  - Weight increased [Unknown]
